FAERS Safety Report 23794883 (Version 4)
Quarter: 2024Q3

REPORT INFORMATION
  Report Type: Spontaneous
  Country: US (occurrence: US)
  Receive Date: 20240429
  Receipt Date: 20240723
  Transmission Date: 20241017
  Serious: No
  Sender: CSL BEHRING
  Company Number: US-BEH-2024171490

PATIENT
  Age: 22 Year
  Sex: Male

DRUGS (1)
  1. HEMGENIX [Suspect]
     Active Substance: ETRANACOGENE DEZAPARVOVEC
     Indication: Factor IX deficiency
     Dosage: UNK, SINGLE
     Route: 042
     Dates: start: 20240422, end: 20240422

REACTIONS (3)
  - Alanine aminotransferase abnormal [Unknown]
  - Hepatic enzyme increased [Unknown]
  - Feeling abnormal [Not Recovered/Not Resolved]

NARRATIVE: CASE EVENT DATE: 20240401
